FAERS Safety Report 24753640 (Version 1)
Quarter: 2024Q4

REPORT INFORMATION
  Report Type: Spontaneous
  Country: US (occurrence: US)
  Receive Date: 20241219
  Receipt Date: 20241219
  Transmission Date: 20250115
  Serious: Yes (Other)
  Sender: PFIZER
  Company Number: US-PFIZER INC-202400325898

PATIENT
  Age: 67 Year
  Sex: Female

DRUGS (1)
  1. LITFULO [Suspect]
     Active Substance: RITLECITINIB TOSYLATE
     Indication: Alopecia areata
     Dosage: 50 MG, 1 CAPSULE DAILY
     Route: 048

REACTIONS (8)
  - Retinal oedema [Unknown]
  - Retinal degeneration [Unknown]
  - Drug ineffective [Unknown]
  - Pruritus [Unknown]
  - Headache [Unknown]
  - Scar [Unknown]
  - Psoriasis [Unknown]
  - Osteoporosis [Unknown]
